FAERS Safety Report 22284945 (Version 1)
Quarter: 2023Q2

REPORT INFORMATION
  Report Type: Spontaneous
  Country: AU (occurrence: None)
  Receive Date: 20230504
  Receipt Date: 20230504
  Transmission Date: 20230721
  Serious: Yes (Life-Threatening, Other)
  Sender: FDA-Public Use
  Company Number: 2023A099636

PATIENT
  Age: 35 Year
  Sex: Male

DRUGS (10)
  1. ESOMEPRAZOLE MAGNESIUM [Interacting]
     Active Substance: ESOMEPRAZOLE MAGNESIUM
  2. HEPARIN [Suspect]
     Active Substance: HEPARIN SODIUM
  3. ATORVASTATIN [Interacting]
     Active Substance: ATORVASTATIN
  4. CLOZAPINE [Interacting]
     Active Substance: CLOZAPINE
  5. METFORMIN [Concomitant]
     Active Substance: METFORMIN HYDROCHLORIDE
  6. ARIPIPRAZOLE [Concomitant]
     Active Substance: ARIPIPRAZOLE
  7. MEROPENEM [Concomitant]
     Active Substance: MEROPENEM
  8. METHYLPREDNISOLONE [Concomitant]
     Active Substance: METHYLPREDNISOLONE
  9. OLANZAPINE [Concomitant]
     Active Substance: OLANZAPINE
  10. PREDNISOLONE [Concomitant]
     Active Substance: PREDNISOLONE

REACTIONS (15)
  - Acute kidney injury [Unknown]
  - Acute respiratory failure [Unknown]
  - Deep vein thrombosis [Unknown]
  - Diabetic ketoacidosis [Unknown]
  - Hyperglycaemic hyperosmolar nonketotic syndrome [Unknown]
  - Metabolic acidosis [Unknown]
  - Multiple organ dysfunction syndrome [Unknown]
  - Septic shock [Unknown]
  - Toxicity to various agents [Unknown]
  - Tubulointerstitial nephritis [Unknown]
  - Drug interaction [Unknown]
  - Food interaction [Unknown]
  - Heparin-induced thrombocytopenia [Unknown]
  - Inflammatory marker increased [Unknown]
  - Loss of consciousness [Unknown]
